FAERS Safety Report 23050502 (Version 1)
Quarter: 2023Q4

REPORT INFORMATION
  Report Type: Report from Study
  Country: US (occurrence: US)
  Receive Date: 20231010
  Receipt Date: 20231010
  Transmission Date: 20240110
  Serious: Yes (Other)
  Sender: FDA-Public Use
  Company Number: US-ABBVIE-5435005

PATIENT
  Sex: Female

DRUGS (1)
  1. HUMIRA [Suspect]
     Active Substance: ADALIMUMAB
     Indication: Hidradenitis
     Route: 058
     Dates: start: 20171004

REACTIONS (4)
  - Chronic kidney disease [Unknown]
  - Hidradenitis [Not Recovered/Not Resolved]
  - Hidradenitis [Recovered/Resolved]
  - Drug ineffective [Unknown]
